FAERS Safety Report 12531652 (Version 1)
Quarter: 2016Q3

REPORT INFORMATION
  Report Type: Spontaneous
  Country: US (occurrence: US)
  Receive Date: 20160706
  Receipt Date: 20160706
  Transmission Date: 20161109
  Serious: No
  Sender: FDA-Public Use
  Company Number: US-BAUSCH-BL-2016-001048

PATIENT
  Sex: Female

DRUGS (1)
  1. OFLOXACIN OPHTHALMIC [Suspect]
     Active Substance: OFLOXACIN
     Indication: SCAR
     Route: 001
     Dates: start: 201501

REACTIONS (4)
  - Incorrect route of drug administration [Unknown]
  - Hypoacusis [Unknown]
  - Feeling abnormal [Unknown]
  - Drug ineffective [Unknown]
